FAERS Safety Report 5127737-3 (Version None)
Quarter: 2006Q4

REPORT INFORMATION
  Report Type: 
  Country: None (occurrence: None)
  Receive Date: 20061016
  Receipt Date: 20061012
  Transmission Date: 20070319
  Serious: Yes (Hospitalization)
  Sender: FDA-Public Use
  Company Number: AU-GLAXOSMITHKLINE-B0442090A

PATIENT
  Sex: Male

DRUGS (7)
  1. AUGMENTIN '125' [Suspect]
     Dosage: 1TAB TWICE PER DAY
     Route: 065
  2. NEXIUM [Concomitant]
     Route: 065
  3. SERETIDE [Concomitant]
     Route: 065
  4. VENTOLIN [Concomitant]
     Route: 065
  5. ATROVENT [Concomitant]
     Route: 065
  6. BRICANYL [Concomitant]
     Route: 065
  7. CELESTONE [Concomitant]
     Dosage: 2AMP PER DAY
     Route: 065

REACTIONS (11)
  - CONVULSION [None]
  - DIARRHOEA HAEMORRHAGIC [None]
  - DYSPNOEA [None]
  - EPISTAXIS [None]
  - HEADACHE [None]
  - HYPERSENSITIVITY [None]
  - PAIN [None]
  - PRURITUS [None]
  - URTICARIA [None]
  - WEIGHT DECREASED [None]
  - WHEEZING [None]
